FAERS Safety Report 7056104-0 (Version None)
Quarter: 2010Q4

REPORT INFORMATION
  Report Type: 
  Country: None (occurrence: None)
  Receive Date: 20101021
  Receipt Date: 20101011
  Transmission Date: 20110411
  Serious: Yes (Other)
  Sender: FDA-Public Use
  Company Number: PHHY2010US68030

PATIENT
  Sex: Female

DRUGS (2)
  1. GENTEAL LUBRICATING EYE GEL (NVO) [Suspect]
     Route: 047
  2. GENTEAL [Concomitant]
     Route: 047

REACTIONS (2)
  - BLINDNESS TRANSIENT [None]
  - DRUG INEFFECTIVE [None]
